FAERS Safety Report 20926847 (Version 2)
Quarter: 2022Q3

REPORT INFORMATION
  Report Type: Spontaneous
  Country: US (occurrence: US)
  Receive Date: 20220607
  Receipt Date: 20220714
  Transmission Date: 20221026
  Serious: No
  Sender: FDA-Public Use
  Company Number: US-PFIZER INC-202200798372

PATIENT
  Age: 64 Year

DRUGS (1)
  1. ESTRING [Suspect]
     Active Substance: ESTRADIOL
     Dosage: UNK, EVERY 30 DAYS
     Route: 067

REACTIONS (3)
  - Memory impairment [Unknown]
  - Underdose [Unknown]
  - Off label use [Unknown]
